FAERS Safety Report 18148233 (Version 3)
Quarter: 2020Q3

REPORT INFORMATION
  Report Type: Report from Study
  Country: US (occurrence: US)
  Receive Date: 20200813
  Receipt Date: 20200901
  Transmission Date: 20201103
  Serious: Yes (Hospitalization, Other)
  Sender: FDA-Public Use
  Company Number: NVSC2020US219839

PATIENT
  Age: 62 Year
  Sex: Male

DRUGS (1)
  1. ENTRESTO [Suspect]
     Active Substance: SACUBITRIL\VALSARTAN
     Indication: CARDIAC FAILURE
     Dosage: UNK
     Route: 048
     Dates: start: 20190604

REACTIONS (13)
  - Product dose omission issue [Unknown]
  - COVID-19 [Recovered/Resolved]
  - Asthenia [Unknown]
  - Cerebral disorder [Unknown]
  - Dyspnoea [Recovered/Resolved]
  - Malaise [Unknown]
  - Diarrhoea [Unknown]
  - Weight increased [Recovered/Resolved]
  - Pyrexia [Recovered/Resolved]
  - Wrong technique in product usage process [Recovered/Resolved]
  - Clostridium difficile infection [Unknown]
  - Memory impairment [Unknown]
  - Tremor [Recovering/Resolving]

NARRATIVE: CASE EVENT DATE: 2019
